FAERS Safety Report 6473984-8 (Version None)
Quarter: 2009Q4

REPORT INFORMATION
  Report Type: 
  Country: None (occurrence: None)
  Receive Date: 20091130
  Receipt Date: 20091113
  Transmission Date: 20100525
  Serious: Yes (Other)
  Sender: FDA-Public Use
  Company Number: B0606924A

PATIENT
  Age: 44 Year
  Sex: Male

DRUGS (7)
  1. LAMIVUDINE [Suspect]
     Indication: HIV INFECTION
  2. ABACAVIR SULFATE [Suspect]
     Indication: HIV INFECTION
  3. RITONAVIR [Suspect]
     Indication: HIV INFECTION
  4. INDINIVIR SULFATE [Suspect]
     Indication: HIV INFECTION
  5. ATAZANAVIR SULFATE [Suspect]
     Indication: HIV INFECTION
  6. EFAVIRENZ [Suspect]
     Indication: HIV INFECTION
  7. RALTEGRAVIR (FORMULATION UNKNOWN) (RALTEGRAVIR) [Suspect]
     Indication: HIV INFECTION

REACTIONS (1)
  - PARKINSONISM [None]
